FAERS Safety Report 6588806-4 (Version None)
Quarter: 2010Q1

REPORT INFORMATION
  Report Type: 
  Country: None (occurrence: None)
  Receive Date: 20100218
  Receipt Date: 20100209
  Transmission Date: 20100710
  Serious: Yes (Hospitalization)
  Sender: FDA-Public Use
  Company Number: JP-JNJFOC-20100207312

PATIENT
  Age: 56 Year
  Sex: Male

DRUGS (1)
  1. CRAVIT [Suspect]
     Indication: INFECTION PROPHYLAXIS
     Route: 048

REACTIONS (4)
  - DYSPNOEA [None]
  - ECZEMA [None]
  - ERYTHEMA [None]
  - GENERALISED OEDEMA [None]
